FAERS Safety Report 16586944 (Version 1)
Quarter: 2019Q3

REPORT INFORMATION
  Report Type: Spontaneous
  Country: DE (occurrence: DE)
  Receive Date: 20190717
  Receipt Date: 20190717
  Transmission Date: 20191004
  Serious: Yes (Death, Hospitalization)
  Sender: FDA-Public Use
  Company Number: DE-TEVA-2019-DE-1078073

PATIENT
  Age: 93 Year
  Sex: Female

DRUGS (7)
  1. TORASEMID [Concomitant]
     Active Substance: TORSEMIDE
     Dosage: 5 MG, 1.5-0-0-0
     Route: 065
  2. KALIUM [Concomitant]
     Active Substance: POTASSIUM CHLORIDE
     Dosage: NK MG, 1-0-0-0
     Route: 065
  3. FLUOROURACIL. [Suspect]
     Active Substance: FLUOROURACIL
     Dosage: NK MG, LAST ADMINISTRATION 02/2017
  4. METAMIZOL [Concomitant]
     Active Substance: METAMIZOLE SODIUM
     Dosage: 500 MG, 1-1-1-1
     Route: 065
  5. MITOMYCIN. [Suspect]
     Active Substance: MITOMYCIN
     Dosage: NK MG, LAST ADMINISTRATION 02/2017
     Route: 065
  6. LACTULOSE. [Concomitant]
     Active Substance: LACTULOSE
     Dosage: 1 MB, 1-1-1-0
     Route: 065
  7. TILIDINE/NALOXONE [Concomitant]
     Active Substance: NALOXONE HYDROCHLORIDE\TILIDINE HYDROCHLORIDE
     Dosage: 100|8 MG, 1-0-1-0
     Route: 065

REACTIONS (1)
  - Laboratory test abnormal [Unknown]

NARRATIVE: CASE EVENT DATE: 20170514
